FAERS Safety Report 19077824 (Version 1)
Quarter: 2021Q1

REPORT INFORMATION
  Report Type: Spontaneous
  Country: CN (occurrence: CN)
  Receive Date: 20210331
  Receipt Date: 20210331
  Transmission Date: 20210420
  Serious: Yes (Other)
  Sender: FDA-Public Use
  Company Number: CN-PFIZER INC-2021307617

PATIENT
  Age: 60 Year
  Sex: Male
  Weight: 55 kg

DRUGS (2)
  1. SODIUM CHLORIDE. [Concomitant]
     Active Substance: SODIUM CHLORIDE
     Indication: VEHICLE SOLUTION USE
     Dosage: 500.000 ML, 1X/DAY
     Route: 041
     Dates: start: 20210302, end: 20210302
  2. PACLITAXEL. [Suspect]
     Active Substance: PACLITAXEL
     Indication: CHEMOTHERAPY
     Dosage: 180.000 MG, 1X/DAY
     Route: 041
     Dates: start: 20210302, end: 20210302

REACTIONS (4)
  - Erythema [Recovering/Resolving]
  - Swelling [Recovering/Resolving]
  - Blood pressure increased [Recovering/Resolving]
  - Palpitations [Recovering/Resolving]

NARRATIVE: CASE EVENT DATE: 20210302
